FAERS Safety Report 10684520 (Version 1)
Quarter: 2014Q4

REPORT INFORMATION
  Report Type: Other
  Country: US (occurrence: US)
  Receive Date: 20141231
  Receipt Date: 20141231
  Transmission Date: 20150529
  Serious: Yes (Hospitalization)
  Sender: FDA-Public Use
  Company Number: US-LUPIN PHARMACEUTICALS INC.-2014-01901

PATIENT
  Age: 3 Month
  Sex: Male

DRUGS (2)
  1. DULOXETINE [Suspect]
     Active Substance: DULOXETINE
     Indication: PRODUCT USED FOR UNKNOWN INDICATION
     Route: 063
  2. BRIMONIDINE + TIMOLOL OPHTHALMIC SOLUTION [Concomitant]
     Indication: PRODUCT USED FOR UNKNOWN INDICATION
     Route: 061

REACTIONS (6)
  - Pallor [Recovered/Resolved]
  - Loss of consciousness [Recovered/Resolved]
  - Exposure during breast feeding [Unknown]
  - Hypothermia [Recovered/Resolved]
  - Hypotonia [Recovered/Resolved]
  - Lethargy [Recovered/Resolved]
